FAERS Safety Report 6618702-5 (Version None)
Quarter: 2010Q1

REPORT INFORMATION
  Report Type: 
  Country: None (occurrence: None)
  Receive Date: 20100305
  Receipt Date: 20100305
  Transmission Date: 20100710
  Serious: No
  Sender: FDA-Public Use
  Company Number: None

PATIENT
  Sex: Female
  Weight: 72.5755 kg

DRUGS (2)
  1. LISINOPRIL [Suspect]
     Indication: HYPERTENSION
     Dosage: 40 MG 1 A DAY
     Dates: start: 20100125, end: 20100210
  2. LISINOPRIL [Suspect]
     Indication: HYPERTENSION
     Dosage: ZESTRIL 1 A DAY
     Dates: start: 20100101

REACTIONS (4)
  - COUGH [None]
  - DRUG INEFFECTIVE [None]
  - PAIN [None]
  - UNEVALUABLE EVENT [None]
